FAERS Safety Report 24980301 (Version 7)
Quarter: 2025Q2

REPORT INFORMATION
  Report Type: Spontaneous
  Country: GB (occurrence: GB)
  Receive Date: 20250218
  Receipt Date: 20250618
  Transmission Date: 20250717
  Serious: Yes (Hospitalization, Other)
  Sender: MYLAN
  Company Number: GB-MYLANLABS-2025M1012344

PATIENT
  Sex: Female

DRUGS (12)
  1. CLOZARIL [Suspect]
     Active Substance: CLOZAPINE
     Indication: Schizophrenia
     Dosage: UNK, BID (50MG MORNING AND 200MG EVENING)
     Dates: start: 20240627
  2. CLOZARIL [Suspect]
     Active Substance: CLOZAPINE
     Dosage: UNK, BID (50MG MORNING AND 200MG EVENING)
     Route: 048
     Dates: start: 20240627
  3. CLOZARIL [Suspect]
     Active Substance: CLOZAPINE
     Dosage: UNK, BID (50MG MORNING AND 200MG EVENING)
     Route: 048
     Dates: start: 20240627
  4. CLOZARIL [Suspect]
     Active Substance: CLOZAPINE
     Dosage: UNK, BID (50MG MORNING AND 200MG EVENING)
     Dates: start: 20240627
  5. CLOZARIL [Suspect]
     Active Substance: CLOZAPINE
  6. CLOZARIL [Suspect]
     Active Substance: CLOZAPINE
     Route: 048
  7. CLOZARIL [Suspect]
     Active Substance: CLOZAPINE
  8. CLOZARIL [Suspect]
     Active Substance: CLOZAPINE
     Route: 048
  9. CLOZARIL [Suspect]
     Active Substance: CLOZAPINE
     Route: 048
  10. CLOZARIL [Suspect]
     Active Substance: CLOZAPINE
     Route: 048
  11. CLOZARIL [Suspect]
     Active Substance: CLOZAPINE
  12. CLOZARIL [Suspect]
     Active Substance: CLOZAPINE

REACTIONS (7)
  - Schizophrenia [Unknown]
  - Confusional state [Unknown]
  - Neutropenia [Recovering/Resolving]
  - Leukopenia [Recovering/Resolving]
  - Eosinophil count decreased [Not Recovered/Not Resolved]
  - White blood cell count decreased [Recovering/Resolving]
  - Product dose omission issue [Unknown]

NARRATIVE: CASE EVENT DATE: 20250101
